FAERS Safety Report 6585817-X (Version None)
Quarter: 2010Q1

REPORT INFORMATION
  Report Type: 
  Country: None (occurrence: None)
  Receive Date: 20100217
  Receipt Date: 20100209
  Transmission Date: 20100710
  Serious: Yes (Hospitalization)
  Sender: FDA-Public Use
  Company Number: GR-ROCHE-683552

PATIENT
  Age: 53 Year
  Sex: Female
  Weight: 58 kg

DRUGS (3)
  1. AVASTIN [Suspect]
     Indication: BREAST CANCER
     Dosage: DOSE: 10 MG/KG (10 MG/KG X 58 KG= 580 MG IN TOTAL)
     Route: 042
     Dates: start: 20091208, end: 20091208
  2. TAXOL [Concomitant]
     Indication: BREAST CANCER
  3. CARBOPLATIN [Concomitant]
     Indication: BREAST CANCER

REACTIONS (4)
  - ANGIOPATHY [None]
  - ARTERIAL THROMBOSIS [None]
  - BLINDNESS UNILATERAL [None]
  - EYE MOVEMENT DISORDER [None]
